FAERS Safety Report 8479169-8 (Version None)
Quarter: 2012Q2

REPORT INFORMATION
  Report Type: 
  Country: None (occurrence: None)
  Receive Date: 20120402
  Receipt Date: 20110825
  Transmission Date: 20120825
  Serious: Yes (Life-Threatening)
  Sender: FDA-Public Use
  Company Number: 2011ST000238

PATIENT
  Age: 15 Year
  Sex: Female
  Weight: 62 kg

DRUGS (3)
  1. METHOTREXATE [Concomitant]
  2. VINCRISTINE [Concomitant]
  3. ONCASPAR [Suspect]
     Indication: ACUTE LYMPHOCYTIC LEUKAEMIA
     Dosage: 4000 IU;XI;IV
     Route: 042
     Dates: start: 20110811, end: 20110811

REACTIONS (4)
  - CHEST DISCOMFORT [None]
  - HYPERSENSITIVITY [None]
  - THROAT TIGHTNESS [None]
  - COUGH [None]
